FAERS Safety Report 9269076 (Version 2)
Quarter: 2013Q2

REPORT INFORMATION
  Report Type: Spontaneous
  Country: US (occurrence: US)
  Receive Date: 20130503
  Receipt Date: 20130524
  Transmission Date: 20140414
  Serious: No
  Sender: FDA-Public Use
  Company Number: US-009507513-1304USA016856

PATIENT
  Sex: Female

DRUGS (4)
  1. VICTRELIS [Suspect]
     Dosage: UNK
     Route: 048
  2. VICTRELIS [Suspect]
     Dosage: UNK
     Route: 048
  3. PEGINTRON [Suspect]
     Dosage: UNK
  4. PEGINTRON [Suspect]
     Dosage: UNK

REACTIONS (1)
  - Hepatitis C [Not Recovered/Not Resolved]
